FAERS Safety Report 9410064 (Version 1)
Quarter: 2013Q3

REPORT INFORMATION
  Report Type: Spontaneous
  Country: US (occurrence: US)
  Receive Date: 20130719
  Receipt Date: 20130719
  Transmission Date: 20140515
  Serious: Yes (Hospitalization)
  Sender: FDA-Public Use
  Company Number: US-NOVOPROD-382904

PATIENT
  Age: 65 Year
  Sex: Male
  Weight: 122.45 kg

DRUGS (5)
  1. NOVOLOG FLEXPEN [Suspect]
     Indication: TYPE 2 DIABETES MELLITUS
     Dosage: SLIDING SCALE
     Route: 058
     Dates: start: 2010
  2. LANTUS [Suspect]
     Indication: TYPE 2 DIABETES MELLITUS
     Dosage: 8 U QD
     Route: 058
     Dates: start: 2010
  3. DIURETICS [Concomitant]
     Indication: CARDIAC FAILURE CONGESTIVE
     Dosage: UNK
  4. POTASSIUM [Concomitant]
     Indication: CARDIAC FAILURE CONGESTIVE
     Dosage: UNK
  5. MAGNESIUM [Concomitant]
     Indication: CARDIAC FAILURE CONGESTIVE
     Dosage: UNK

REACTIONS (7)
  - Localised infection [Not Recovered/Not Resolved]
  - Weight increased [Not Recovered/Not Resolved]
  - Pain in extremity [Not Recovered/Not Resolved]
  - Fluid retention [Not Recovered/Not Resolved]
  - Wound [Not Recovered/Not Resolved]
  - Tachycardia [Unknown]
  - Blood potassium decreased [Unknown]
